FAERS Safety Report 21477247 (Version 1)
Quarter: 2022Q4

REPORT INFORMATION
  Report Type: Other
  Country: IE (occurrence: None)
  Receive Date: 20221019
  Receipt Date: 20221019
  Transmission Date: 20230113
  Serious: Yes (Other)
  Sender: FDA-Public Use
  Company Number: IE-ROCHE-3198816

PATIENT
  Sex: Female

DRUGS (1)
  1. OCREVUS [Suspect]
     Active Substance: OCRELIZUMAB
     Indication: Multiple sclerosis
     Dosage: 600 MG, ONCE IN 6 MONTH.
     Route: 042

REACTIONS (3)
  - Flushing [Unknown]
  - Pyrexia [Unknown]
  - Urinary tract infection [Recovered/Resolved]
